FAERS Safety Report 14865861 (Version 1)
Quarter: 2018Q2

REPORT INFORMATION
  Report Type: Spontaneous
  Country: US (occurrence: US)
  Receive Date: 20180508
  Receipt Date: 20180508
  Transmission Date: 20180711
  Serious: No
  Sender: FDA-Public Use
  Company Number: US-ALKERMES INC.-ALK-2018-000202

PATIENT
  Age: 46 Year
  Sex: Female

DRUGS (5)
  1. VIVITROL [Suspect]
     Active Substance: NALTREXONE
     Indication: ALCOHOLISM
     Dosage: 380 MG, QMO
     Route: 030
     Dates: start: 20160701, end: 20170401
  2. NALTREXONE [Concomitant]
     Active Substance: NALTREXONE
     Indication: PRODUCT USED FOR UNKNOWN INDICATION
     Route: 048
  3. OTHER THERAPEUTIC PRODUCTS [Concomitant]
     Active Substance: UNSPECIFIED INGREDIENT
     Indication: SLEEP DISORDER
     Dosage: UNK
  4. SEROQUEL [Concomitant]
     Active Substance: QUETIAPINE FUMARATE
     Indication: MENTAL DISORDER
     Dosage: UNK
  5. OTHER THERAPEUTIC PRODUCTS [Concomitant]
     Active Substance: UNSPECIFIED INGREDIENT
     Indication: MENTAL DISORDER
     Dosage: UNK

REACTIONS (2)
  - Panic attack [Unknown]
  - Alcoholism [Unknown]

NARRATIVE: CASE EVENT DATE: 20171218
